FAERS Safety Report 4990073-X (Version None)
Quarter: 2006Q2

REPORT INFORMATION
  Report Type: 
  Country: None (occurrence: None)
  Receive Date: 20060503
  Receipt Date: 20041207
  Transmission Date: 20061013
  Serious: Yes (Death, Hospitalization, Disabling)
  Sender: FDA-Public Use
  Company Number: US-MERCK-0412USA01002

PATIENT
  Age: 53 Year
  Sex: Male
  Weight: 118 kg

DRUGS (4)
  1. VIOXX [Suspect]
     Indication: BACK PAIN
     Route: 048
     Dates: start: 19990101, end: 20020101
  2. VIOXX [Suspect]
     Route: 048
     Dates: start: 19990601, end: 20020101
  3. VIOXX [Suspect]
     Indication: ROTATOR CUFF SYNDROME
     Route: 048
     Dates: start: 19990101, end: 20020101
  4. VIOXX [Suspect]
     Route: 048
     Dates: start: 19990601, end: 20020101

REACTIONS (9)
  - CARDIAC DISORDER [None]
  - CEREBROVASCULAR ACCIDENT [None]
  - DEATH [None]
  - DEPRESSION [None]
  - EYELID DISORDER [None]
  - INTESTINAL FUNCTIONAL DISORDER [None]
  - MALAISE [None]
  - POST-TRAUMATIC STRESS DISORDER [None]
  - VISUAL DISTURBANCE [None]
